FAERS Safety Report 19198395 (Version 3)
Quarter: 2021Q2

REPORT INFORMATION
  Report Type: Other
  Country: AT (occurrence: AT)
  Receive Date: 20210430
  Receipt Date: 20210608
  Transmission Date: 20210717
  Serious: Yes (Other)
  Sender: FDA-Public Use
  Company Number: AT-CELLTRION INC.-2019AT022463

PATIENT

DRUGS (13)
  1. FORTECORTIN [Concomitant]
     Active Substance: DEXAMETHASONE
     Dosage: ONGOING = CHECKED
     Dates: start: 20170711
  2. NEULASTA [Concomitant]
     Active Substance: PEGFILGRASTIM
     Dosage: ONGOING = CHECKED
     Dates: start: 20170711
  3. EMEND [Concomitant]
     Active Substance: APREPITANT
     Dosage: ONGOING = CHECKED
     Dates: start: 20170711
  4. CARBOPLATIN. [Suspect]
     Active Substance: CARBOPLATIN
     Indication: HER2 POSITIVE BREAST CANCER
     Dosage: 528 MG, EVERY 3 WEEKS (RECEIVED MOST RECENT DOSE OF CARBOPLATIN ON 23/OCT/2017)
     Route: 042
     Dates: start: 20170912, end: 20171023
  5. PERTUZUMAB. [Suspect]
     Active Substance: PERTUZUMAB
     Indication: HER2 POSITIVE BREAST CANCER
     Dosage: 420 MG, EVERY 3 WEEKS (MOST RECENT DOSE PRIOR TO THE EVENT: 29/MAY/2018)
     Route: 042
     Dates: start: 20170912, end: 20180529
  6. ARANESP [Concomitant]
     Active Substance: DARBEPOETIN ALFA
     Dosage: ONGOING = CHECKED
     Dates: start: 20170711
  7. TRASTUZUMAB (UNKNOWN) [Suspect]
     Active Substance: TRASTUZUMAB
     Indication: HER2 POSITIVE BREAST CANCER
     Dosage: 6 MG/KG, EVERY 3 WEEKS
     Route: 042
     Dates: start: 20170912, end: 20200121
  8. DOCETAXEL. [Suspect]
     Active Substance: DOCETAXEL
     Indication: HER2 POSITIVE BREAST CANCER
     Dosage: 109 MG, EVERY 3 WEEKS (RECEIVED MOST RECENT DOSE OF DOCETAXEL ON 23/OCT/2017.)
     Route: 042
     Dates: start: 20170912, end: 20171023
  9. EPIRUBICIN [Suspect]
     Active Substance: EPIRUBICIN
     Indication: HER2 POSITIVE BREAST CANCER
     Dosage: 100 MG/M2, EVERY 3 WEEKS (MOST RECENT DOSE PRIOR TO THE EVENT: 10/JUL/2018)
     Route: 042
     Dates: start: 20180529, end: 20180710
  10. ZOFRAN [Concomitant]
     Active Substance: ONDANSETRON HYDROCHLORIDE
     Dosage: ONGOING = CHECKED
     Dates: start: 20170611
  11. DOLOPHINE [Concomitant]
     Active Substance: METHADONE HYDROCHLORIDE
     Dosage: ONGOING = CHECKED
  12. CYCLOPHOSPHAMIDE. [Suspect]
     Active Substance: CYCLOPHOSPHAMIDE
     Indication: HER2 POSITIVE BREAST CANCER
     Dosage: 500 MG/M2, EVERY 3 WEEKS (MOST RECENT DOSE PRIOR TO THE EVENT: 10/JUL/2018)
     Route: 042
     Dates: start: 20180529, end: 20180710
  13. FLUOROURACIL. [Suspect]
     Active Substance: FLUOROURACIL
     Indication: HER2 POSITIVE BREAST CANCER
     Dosage: 500 MG/M2, EVERY 3 WEEKS (MOST RECENT DOSE PRIOR TO THE EVENT: 10/JUL/2018)
     Route: 042
     Dates: start: 20180529, end: 20180710

REACTIONS (6)
  - Breast pain [Recovered/Resolved]
  - Herpes zoster [Recovered/Resolved]
  - Rhinitis [Recovered/Resolved]
  - Thrombocytopenia [Recovered/Resolved]
  - Respiratory tract infection [Recovered/Resolved]
  - Neuropathy peripheral [Unknown]

NARRATIVE: CASE EVENT DATE: 20180605
